FAERS Safety Report 6235003-8 (Version None)
Quarter: 2009Q2

REPORT INFORMATION
  Report Type: 
  Country: None (occurrence: None)
  Receive Date: 20090618
  Receipt Date: 20090608
  Transmission Date: 20091009
  Serious: Yes (Hospitalization)
  Sender: FDA-Public Use
  Company Number: US-MYLANLABS-2009S1010227

PATIENT
  Age: 53 Year
  Sex: Female

DRUGS (3)
  1. COPAXONE [Suspect]
     Indication: MULTIPLE SCLEROSIS
     Route: 058
     Dates: start: 20040524, end: 20080801
  2. COPAXONE [Suspect]
     Route: 058
  3. METHOTREXATE [Suspect]
     Indication: MULTIPLE SCLEROSIS
     Route: 048
     Dates: end: 20080801

REACTIONS (1)
  - MALIGNANT MELANOMA [None]
